FAERS Safety Report 18191267 (Version 2)
Quarter: 2020Q3

REPORT INFORMATION
  Report Type: Spontaneous
  Country: GB (occurrence: VN)
  Receive Date: 20200825
  Receipt Date: 20200825
  Transmission Date: 20201103
  Serious: Yes (Other)
  Sender: FDA-Public Use
  Company Number: VN-ASTELLAS-2020US027863

PATIENT
  Sex: Male
  Weight: 58 kg

DRUGS (1)
  1. TARCEVA [Suspect]
     Active Substance: ERLOTINIB HYDROCHLORIDE
     Indication: LUNG CANCER METASTATIC
     Route: 048

REACTIONS (4)
  - Somnolence [Unknown]
  - Metastases to central nervous system [Unknown]
  - Weight increased [Unknown]
  - Decreased appetite [Recovered/Resolved]
